FAERS Safety Report 9818324 (Version 1)
Quarter: 2014Q1

REPORT INFORMATION
  Report Type: Spontaneous
  Country: US (occurrence: US)
  Receive Date: 20140115
  Receipt Date: 20140115
  Transmission Date: 20141002
  Serious: No
  Sender: FDA-Public Use
  Company Number: US-PFIZER INC-2014008663

PATIENT
  Age: 74 Year
  Sex: Female
  Weight: 71.2 kg

DRUGS (3)
  1. PREMARIN [Suspect]
     Dosage: UNK
  2. ESTRING [Suspect]
     Dosage: UNK
  3. ESTRACE [Suspect]
     Dosage: UNK

REACTIONS (3)
  - Drug hypersensitivity [Unknown]
  - Vulvovaginal pruritus [Unknown]
  - Vulvovaginal discomfort [Unknown]
